FAERS Safety Report 5515387-6 (Version None)
Quarter: 2007Q4

REPORT INFORMATION
  Report Type: 
  Country: None (occurrence: None)
  Receive Date: 20071109
  Receipt Date: 20071031
  Transmission Date: 20080405
  Serious: Yes (Disabling, Other)
  Sender: FDA-Public Use
  Company Number: LTI2007A00301

PATIENT
  Age: 64 Year
  Sex: Female

DRUGS (4)
  1. COMPETACT (PIOGLITAZONE HYDROCHLORIDE, METFORMIN HYDROCHLORIDE) [Suspect]
     Indication: TYPE 2 DIABETES MELLITUS
     Dosage: 45 MG (15 MG, 3 IN 1 D)
     Route: 048
     Dates: start: 20070704, end: 20071010
  2. AMARYL [Concomitant]
  3. DAFLON (DIOSMIN) [Concomitant]
  4. LEVOTHYROXINE SODIUM [Concomitant]

REACTIONS (3)
  - BONE FISSURE [None]
  - PAIN [None]
  - PELVIC PAIN [None]
